FAERS Safety Report 11250341 (Version 1)
Quarter: 2015Q3

REPORT INFORMATION
  Report Type: Spontaneous
  Country: US (occurrence: US)
  Receive Date: 20150708
  Receipt Date: 20150708
  Transmission Date: 20151125
  Serious: No
  Sender: FDA-Public Use
  Company Number: US-ELI_LILLY_AND_COMPANY-US201008006932

PATIENT
  Age: 55 Year
  Sex: Female

DRUGS (1)
  1. SYMBYAX [Suspect]
     Active Substance: FLUOXETINE HYDROCHLORIDE\OLANZAPINE
     Indication: DEPRESSION
     Dosage: UNK, EACH EVENING
     Dates: start: 20100818

REACTIONS (3)
  - Tremor [Unknown]
  - Thirst [Unknown]
  - Anxiety [Unknown]

NARRATIVE: CASE EVENT DATE: 20100821
